FAERS Safety Report 9817860 (Version 1)
Quarter: 2013Q4

REPORT INFORMATION
  Report Type: Spontaneous
  Country: US (occurrence: None)
  Receive Date: 20131223
  Receipt Date: 20131223
  Transmission Date: 20140711
  Serious: No
  Sender: FDA-Public Use
  Company Number: 219704

PATIENT
  Age: 69 Year
  Sex: Male

DRUGS (3)
  1. PICATO [Suspect]
     Indication: ACTINIC KERATOSIS
     Dosage: (1 IN 1 D), TOPICAL
     Route: 061
     Dates: start: 20121112, end: 20121114
  2. LIPITOR (ATORVASTATIN CALCIUM) [Concomitant]
  3. PRILOSEC [Concomitant]

REACTIONS (8)
  - Application site erythema [None]
  - Application site pain [None]
  - Application site pruritus [None]
  - Application site scab [None]
  - Application site vesicles [None]
  - Unevaluable event [None]
  - Insomnia [None]
  - Drug administered at inappropriate site [None]
